FAERS Safety Report 24538355 (Version 3)
Quarter: 2025Q3

REPORT INFORMATION
  Report Type: Report from Study
  Country: US (occurrence: US)
  Receive Date: 20241023
  Receipt Date: 20250803
  Transmission Date: 20251020
  Serious: Yes (Hospitalization, Other)
  Sender: ALEXION PHARMACEUTICALS
  Company Number: US-AstraZeneca-CH-00684273A

PATIENT
  Age: 60 Year
  Sex: Female
  Weight: 102.04 kg

DRUGS (1)
  1. ULTOMIRIS [Suspect]
     Active Substance: RAVULIZUMAB-CWVZ
     Indication: Myasthenia gravis
     Dosage: 3600 MILLIGRAM, Q8W
     Route: 065
     Dates: start: 20230626

REACTIONS (15)
  - Sepsis [Unknown]
  - Wound infection [Recovered/Resolved]
  - Rib fracture [Recovering/Resolving]
  - Fall [Recovering/Resolving]
  - Addison^s disease [Unknown]
  - Rheumatoid arthritis [Unknown]
  - Therapeutic response shortened [Not Recovered/Not Resolved]
  - Contusion [Recovered/Resolved]
  - Dyspnoea [Recovered/Resolved]
  - Blister [Recovered/Resolved]
  - Dysphagia [Unknown]
  - Chest pain [Recovered/Resolved]
  - Eye disorder [Unknown]
  - Blood pressure increased [Unknown]
  - Fatigue [Unknown]

NARRATIVE: CASE EVENT DATE: 20240808
